FAERS Safety Report 22173132 (Version 1)
Quarter: 2023Q2

REPORT INFORMATION
  Report Type: Spontaneous
  Country: US (occurrence: None)
  Receive Date: 20230404
  Receipt Date: 20230404
  Transmission Date: 20230721
  Serious: Yes (Hospitalization)
  Sender: FDA-Public Use
  Company Number: None

PATIENT
  Age: 79 Year
  Sex: Male

DRUGS (1)
  1. CAPECITABINE [Suspect]
     Active Substance: CAPECITABINE
     Route: 048

REACTIONS (5)
  - Sepsis [None]
  - Staphylococcal infection [None]
  - Fungal infection [None]
  - Immunosuppression [None]
  - Somnolence [None]

NARRATIVE: CASE EVENT DATE: 20230403
